FAERS Safety Report 18468118 (Version 1)
Quarter: 2020Q4

REPORT INFORMATION
  Report Type: Spontaneous
  Country: CA (occurrence: CA)
  Receive Date: 20201105
  Receipt Date: 20201105
  Transmission Date: 20210114
  Serious: Yes (Other)
  Sender: FDA-Public Use
  Company Number: CA-JNJFOC-20201051262

PATIENT
  Age: 40 Year
  Sex: Female

DRUGS (3)
  1. NAPROXEN. [Concomitant]
     Active Substance: NAPROXEN
     Route: 065
  2. HUMIRA [Concomitant]
     Active Substance: ADALIMUMAB
     Route: 065
  3. INFLIXIMAB, RECOMBINANT [Suspect]
     Active Substance: INFLIXIMAB
     Indication: ANKYLOSING SPONDYLITIS
     Route: 042

REACTIONS (7)
  - Joint stiffness [Recovered/Resolved]
  - Asthenia [Recovered/Resolved]
  - Eczema [Recovered/Resolved]
  - Fatigue [Recovered/Resolved]
  - Crohn^s disease [Recovered/Resolved]
  - Peripheral venous disease [Recovered/Resolved]
  - Headache [Recovered/Resolved]
